FAERS Safety Report 15313736 (Version 2)
Quarter: 2018Q3

REPORT INFORMATION
  Report Type: Report from Study
  Country: BE (occurrence: BE)
  Receive Date: 20180824
  Receipt Date: 20180903
  Transmission Date: 20181010
  Serious: Yes (Death, Disabling)
  Sender: FDA-Public Use
  Company Number: BE-AMGEN-BELNI2018087075

PATIENT
  Age: 61 Year
  Sex: Female

DRUGS (6)
  1. ZOLEDRONATE [Concomitant]
     Active Substance: ZOLEDRONIC ACID
     Dosage: 4 MG, Q4WK
     Dates: start: 20140228, end: 20140502
  2. DENOSUMAB [Suspect]
     Active Substance: DENOSUMAB
     Indication: METASTASES TO BONE
  3. AFINITOR [Concomitant]
     Active Substance: EVEROLIMUS
     Dosage: UNK
     Dates: start: 20150410
  4. FASLODEX [Concomitant]
     Active Substance: FULVESTRANT
     Indication: METASTASES TO LIVER
     Dosage: UNK
     Dates: start: 20131008, end: 20140606
  5. AROMAZIN [Concomitant]
     Active Substance: EXEMESTANE
     Dosage: UNK
     Dates: start: 20150410
  6. DENOSUMAB [Suspect]
     Active Substance: DENOSUMAB
     Indication: BONE LESION
     Dosage: 120 MG, UNK
     Route: 058
     Dates: start: 20131008, end: 201402

REACTIONS (4)
  - Metastases to liver [Not Recovered/Not Resolved]
  - Metastases to pleura [Not Recovered/Not Resolved]
  - Metastases to bone [Not Recovered/Not Resolved]
  - Disease progression [Fatal]

NARRATIVE: CASE EVENT DATE: 20150604
